FAERS Safety Report 6141446-3 (Version None)
Quarter: 2009Q2

REPORT INFORMATION
  Report Type: 
  Country: None (occurrence: None)
  Receive Date: 20090402
  Receipt Date: 20090325
  Transmission Date: 20091009
  Serious: Yes (Hospitalization, Other)
  Sender: FDA-Public Use
  Company Number: US-MERCK-0605USA00847

PATIENT
  Age: 69 Year
  Sex: Female
  Weight: 73 kg

DRUGS (3)
  1. FOSAMAX [Suspect]
     Indication: OSTEOPOROSIS
     Route: 048
     Dates: start: 19980101, end: 20000101
  2. AREDIA [Suspect]
     Indication: BREAST CANCER METASTATIC
     Route: 041
     Dates: start: 20000301, end: 20030101
  3. ZOMETA [Suspect]
     Route: 041
     Dates: start: 20030101, end: 20060101

REACTIONS (28)
  - ACUTE SINUSITIS [None]
  - BREAST CANCER METASTATIC [None]
  - CATARACT [None]
  - DEPRESSION [None]
  - DIZZINESS [None]
  - DRUG HYPERSENSITIVITY [None]
  - DYSPNOEA [None]
  - EAR PAIN [None]
  - EMOTIONAL DISTRESS [None]
  - EPISTAXIS [None]
  - EYE DISORDER [None]
  - GINGIVAL BLEEDING [None]
  - INFLUENZA LIKE ILLNESS [None]
  - LUNG DISORDER [None]
  - LYMPHADENOPATHY [None]
  - LYMPHOEDEMA [None]
  - NASAL VESTIBULITIS [None]
  - OSTEOMYELITIS [None]
  - OSTEONECROSIS [None]
  - RASH [None]
  - SALIVARY GLAND DISORDER [None]
  - SINUSITIS [None]
  - TOOTH DEPOSIT [None]
  - URTICARIA [None]
  - VEIN DISORDER [None]
  - VENTRICULAR EXTRASYSTOLES [None]
  - VIRAL INFECTION [None]
  - VOCAL CORD PARALYSIS [None]
